FAERS Safety Report 6964765-7 (Version None)
Quarter: 2010Q3

REPORT INFORMATION
  Report Type: 
  Country: None (occurrence: None)
  Receive Date: 20100903
  Receipt Date: 20100824
  Transmission Date: 20110219
  Serious: Yes (Other)
  Sender: FDA-Public Use
  Company Number: US-PFIZER INC-2010107407

PATIENT
  Sex: Female
  Weight: 44.444 kg

DRUGS (7)
  1. CHANTIX [Suspect]
     Indication: SMOKING CESSATION THERAPY
     Dosage: 0.5 MG, 1X/DAY
     Route: 048
     Dates: start: 20100701
  2. CHANTIX [Suspect]
     Dosage: 1 MG, 2X/DAY
     Route: 048
     Dates: end: 20100801
  3. LYRICA [Suspect]
     Indication: FIBROMYALGIA
     Dosage: UNK
     Route: 048
     Dates: start: 20090101
  4. REMERON [Concomitant]
     Indication: DEPRESSION
     Dosage: UNK, DAILY
     Route: 048
  5. HYDROCODONE [Concomitant]
     Indication: FIBROMYALGIA
     Dosage: 10/500 MG, THREE TIMES DAILY
     Route: 048
  6. TRAMADOL [Concomitant]
     Indication: FIBROMYALGIA
     Dosage: 10 MG, 3X/DAY
     Route: 048
  7. NOVOCAIN [Concomitant]
     Indication: FIBROMYALGIA
     Dosage: UNK

REACTIONS (10)
  - ANXIETY [None]
  - BACK PAIN [None]
  - DEPRESSION [None]
  - DISORIENTATION [None]
  - DYSPNOEA [None]
  - FALL [None]
  - HYPERSENSITIVITY [None]
  - MALAISE [None]
  - NIGHTMARE [None]
  - SWELLING [None]
